FAERS Safety Report 4467295-X (Version None)
Quarter: 2004Q4

REPORT INFORMATION
  Report Type: 
  Country: None (occurrence: None)
  Receive Date: 20041006
  Receipt Date: 20040917
  Transmission Date: 20050328
  Serious: Yes (Disabling)
  Sender: FDA-Public Use
  Company Number: GB-GLAXOSMITHKLINE-B0345690A

PATIENT
  Age: 35 Year
  Sex: Male
  Weight: 65 kg

DRUGS (1)
  1. ZYBAN [Suspect]
     Indication: SMOKING CESSATION THERAPY
     Dosage: 150MG PER DAY
     Route: 048
     Dates: start: 20020512, end: 20020522

REACTIONS (5)
  - ANXIETY DISORDER [None]
  - CIRCULATORY COLLAPSE [None]
  - DISABILITY [None]
  - DIZZINESS [None]
  - VOMITING [None]
